FAERS Safety Report 6027875-7 (Version None)
Quarter: 2009Q1

REPORT INFORMATION
  Report Type: 
  Country: None (occurrence: None)
  Receive Date: 20090105
  Receipt Date: 20081215
  Transmission Date: 20090719
  Serious: No
  Sender: FDA-Public Use
  Company Number: US-B.I. PHARMACEUTICALS,INC./RIDGEFIELD-2008-BP-18696BP

PATIENT
  Age: 75 Year
  Sex: Male

DRUGS (7)
  1. CATAPRES-TTS-1 [Suspect]
     Indication: HYPERTENSION
     Dosage: .3MG
     Route: 061
  2. QUALAQUIN [Concomitant]
  3. FUROSEMIDE [Concomitant]
  4. HUMALOG [Concomitant]
  5. HECTOROL [Concomitant]
  6. PROTONIX [Concomitant]
  7. COLCHICINE [Concomitant]

REACTIONS (1)
  - HYPERTENSION [None]
